FAERS Safety Report 18009170 (Version 1)
Quarter: 2020Q3

REPORT INFORMATION
  Report Type: Spontaneous
  Country: US (occurrence: US)
  Receive Date: 20200710
  Receipt Date: 20200710
  Transmission Date: 20201103
  Serious: No
  Sender: FDA-Public Use
  Company Number: US-SAOL THERAPEUTICS-2020SAO00156

PATIENT
  Sex: Female
  Weight: 62.9 kg

DRUGS (1)
  1. LIORESAL [Suspect]
     Active Substance: BACLOFEN
     Dosage: 1443.7 ?G, \DAY
     Route: 037

REACTIONS (3)
  - Complication associated with device [Not Recovered/Not Resolved]
  - Muscle spasticity [Unknown]
  - Muscle tightness [Unknown]

NARRATIVE: CASE EVENT DATE: 2019
